FAERS Safety Report 8440789-8 (Version None)
Quarter: 2012Q2

REPORT INFORMATION
  Report Type: 
  Country: None (occurrence: None)
  Receive Date: 20120615
  Receipt Date: 20120606
  Transmission Date: 20120825
  Serious: Yes (Hospitalization)
  Sender: FDA-Public Use
  Company Number: US-BAYER-2012-052630

PATIENT
  Age: 25 Year
  Sex: Female
  Weight: 97.959 kg

DRUGS (4)
  1. ADDERALL 5 [Concomitant]
     Dosage: 25 MG, BID
     Route: 048
  2. ADDERALL 5 [Concomitant]
     Indication: ATTENTION DEFICIT/HYPERACTIVITY DISORDER
     Dosage: UNK
     Dates: start: 20090101
  3. YAZ [Suspect]
     Indication: POLYCYSTIC OVARIES
     Dosage: UNK
     Dates: start: 20080724, end: 20090419
  4. AMPHETAMINE AND DEXTROAMPHETAMINE SALTS [Concomitant]
     Dosage: 10 MG / TAKE 1 QAM (INTERPRETED AS EVERY MORNING)
     Dates: start: 20090128, end: 20090729

REACTIONS (6)
  - PAIN IN EXTREMITY [None]
  - PULMONARY EMBOLISM [None]
  - INJURY [None]
  - DEEP VEIN THROMBOSIS [None]
  - DYSPNOEA [None]
  - PAIN [None]
